FAERS Safety Report 8000509-8 (Version None)
Quarter: 2011Q4

REPORT INFORMATION
  Report Type: 
  Country: None (occurrence: None)
  Receive Date: 20111216
  Receipt Date: 20111216
  Transmission Date: 20120403
  Serious: Yes (Other)
  Sender: FDA-Public Use
  Company Number: CIP11003247

PATIENT
  Age: 84 Year
  Sex: Female

DRUGS (2)
  1. APROVEL (IRBESARTAN) [Concomitant]
  2. ACTONEL [Suspect]
     Dosage: 150 MG, ORAL
     Route: 048

REACTIONS (3)
  - FALL [None]
  - RENAL FAILURE [None]
  - FRACTURED COCCYX [None]
